FAERS Safety Report 8713270 (Version 2)
Quarter: 2012Q4

REPORT INFORMATION
  Report Type: Report from Study
  Country: JP (occurrence: JP)
  Receive Date: 20120808
  Receipt Date: 20121016
  Transmission Date: 20130627
  Serious: Yes (Death, Hospitalization, Other)
  Sender: FDA-Public Use
  Company Number: JP-ROCHE-1097573

PATIENT
  Age: 85 Year
  Sex: Female

DRUGS (4)
  1. RANIBIZUMAB [Suspect]
     Indication: AGE-RELATED MACULAR DEGENERATION
     Route: 050
     Dates: start: 20090331
  2. RANIBIZUMAB [Suspect]
     Route: 050
     Dates: start: 20090501
  3. RANIBIZUMAB [Suspect]
     Route: 050
     Dates: start: 20091116
  4. CRAVIT [Concomitant]
     Route: 065
     Dates: start: 200903, end: 200911

REACTIONS (3)
  - Pneumonia aspiration [Fatal]
  - Hip fracture [Unknown]
  - Fall [Unknown]
